FAERS Safety Report 6334450-3 (Version None)
Quarter: 2009Q3

REPORT INFORMATION
  Report Type: 
  Country: None (occurrence: None)
  Receive Date: 20090831
  Receipt Date: 20070911
  Transmission Date: 20100115
  Serious: Yes (Other)
  Sender: FDA-Public Use
  Company Number: US-ASTRAZENECA-2007UW11480

PATIENT
  Age: 16187 Day
  Sex: Female
  Weight: 96.6 kg

DRUGS (10)
  1. SEROQUEL [Suspect]
     Indication: BIPOLAR DISORDER
     Dosage: 400-600 MG
     Route: 048
     Dates: start: 20030924, end: 20050701
  2. SEROQUEL [Suspect]
     Dosage: 100-300 MG
     Route: 048
     Dates: start: 20030929
  3. RISPERDAL [Concomitant]
     Dates: start: 20020601, end: 20030401
  4. GEODON [Concomitant]
     Dates: start: 20061101, end: 20080701
  5. ABILIFY [Concomitant]
     Dosage: 10-15 MG
     Dates: start: 20050901, end: 20060101
  6. ABILIFY [Concomitant]
     Dosage: 15 MG-50 MG
     Route: 048
     Dates: start: 20050921
  7. TEGRETOL [Concomitant]
     Dosage: 200-400 MG
     Route: 048
     Dates: start: 20050921
  8. ZOLOFT [Concomitant]
     Route: 048
     Dates: start: 20051017
  9. GYNODIOL [Concomitant]
     Route: 048
     Dates: start: 20050921
  10. DEPAKOTE [Concomitant]
     Dosage: 500 MG TO 1000 MG
     Route: 048
     Dates: start: 20020613

REACTIONS (9)
  - BLOOD CHOLESTEROL INCREASED [None]
  - DIABETES MELLITUS INADEQUATE CONTROL [None]
  - EPISTAXIS [None]
  - HYPERCHOLESTEROLAEMIA [None]
  - HYPERLIPIDAEMIA [None]
  - HYPERTRIGLYCERIDAEMIA [None]
  - NEUROPATHY PERIPHERAL [None]
  - OBESITY [None]
  - TYPE 2 DIABETES MELLITUS [None]
